FAERS Safety Report 18146960 (Version 1)
Quarter: 2020Q3

REPORT INFORMATION
  Report Type: Spontaneous
  Country: IT (occurrence: IT)
  Receive Date: 20200813
  Receipt Date: 20200813
  Transmission Date: 20201103
  Serious: Yes (Hospitalization)
  Sender: FDA-Public Use
  Company Number: IT-MYLANLABS-2020M1070918

PATIENT
  Age: 52 Year
  Sex: Female

DRUGS (4)
  1. CLARITHROMYCIN. [Suspect]
     Active Substance: CLARITHROMYCIN
     Indication: MYCOBACTERIUM CHELONAE INFECTION
     Dosage: 1 GRAM, QD
     Route: 065
  2. DOXYCYCLINE. [Suspect]
     Active Substance: DOXYCYCLINE
     Indication: MYCOBACTERIUM CHELONAE INFECTION
     Dosage: 200 MILLIGRAM, QD
     Route: 065
  3. LEVOFLOXACIN. [Suspect]
     Active Substance: LEVOFLOXACIN
     Indication: MYCOBACTERIUM CHELONAE INFECTION
     Dosage: 500 MILLIGRAM, QD
     Route: 065
  4. RIFAMPICIN [Suspect]
     Active Substance: RIFAMPIN
     Indication: MYCOBACTERIUM CHELONAE INFECTION
     Dosage: 600 MILLIGRAM, QD
     Route: 065

REACTIONS (1)
  - Drug ineffective [Unknown]
